FAERS Safety Report 5823309-3 (Version None)
Quarter: 2008Q3

REPORT INFORMATION
  Report Type: 
  Country: None (occurrence: None)
  Receive Date: 20080725
  Receipt Date: 20070607
  Transmission Date: 20090109
  Serious: No
  Sender: FDA-Public Use
  Company Number: US-AMGEN-KDL224520

PATIENT
  Sex: Male
  Weight: 88.5 kg

DRUGS (5)
  1. EPOGEN [Suspect]
     Indication: MYELODYSPLASTIC SYNDROME
     Dates: start: 20050901
  2. SYNTHROID [Concomitant]
  3. TAGAMET [Concomitant]
  4. DIURETICS [Concomitant]
  5. ACCUPRIL [Concomitant]

REACTIONS (2)
  - ANXIETY [None]
  - TREMOR [None]
